FAERS Safety Report 7279318 (Version 3)
Quarter: 2013Q2

REPORT INFORMATION
  Report Type: Report from Study
  Country: KR (occurrence: KR)
  Receive Date: 20100216
  Receipt Date: 20130523
  Transmission Date: 20140414
  Serious: Yes (Hospitalization)
  Sender: FDA-Public Use
  Company Number: PHHO2010KR02194

PATIENT
  Sex: 0

DRUGS (3)
  1. ZOLEDRONATE [Suspect]
     Indication: PLASMA CELL MYELOMA
     Dosage: 4 MG EVERY 3-4 WEEK
     Route: 042
     Dates: start: 20090316, end: 20100108
  2. VITAMIN D [Concomitant]
  3. CALCIUM [Concomitant]

REACTIONS (1)
  - Osteonecrosis of jaw [Recovered/Resolved]
